FAERS Safety Report 9580294 (Version 1)
Quarter: 2013Q3

REPORT INFORMATION
  Report Type: Spontaneous
  Country: US (occurrence: None)
  Receive Date: 20130916
  Receipt Date: 20130916
  Transmission Date: 20140515
  Serious: Yes (Hospitalization, Other)
  Sender: FDA-Public Use
  Company Number: JPI-P-024617

PATIENT
  Age: 27 Year
  Sex: Female

DRUGS (3)
  1. XYREM (500 MILLIGRAM/MILLILITERS, SOLUTION) (SODIUM OXYBATE) [Suspect]
     Indication: CATAPLEXY
     Dosage: 7.5 GM  (3.75 GM, 2 IN 1 D), ORAL
     Route: 048
     Dates: start: 20120714
  2. VILAZODONE [Suspect]
     Indication: DEPRESSION
     Dates: start: 201207
  3. LURASIDONE [Suspect]
     Indication: DEPRESSION
     Dates: start: 201207

REACTIONS (5)
  - Feeling abnormal [None]
  - Abnormal dreams [None]
  - Nightmare [None]
  - Fatigue [None]
  - Depression [None]
